FAERS Safety Report 14438829 (Version 4)
Quarter: 2018Q4

REPORT INFORMATION
  Report Type: Spontaneous
  Country: US (occurrence: US)
  Receive Date: 20180125
  Receipt Date: 20181115
  Transmission Date: 20190204
  Serious: Yes (Other)
  Sender: FDA-Public Use
  Company Number: US-GLAXOSMITHKLINE-US2018000506

PATIENT
  Age: 53 Year
  Sex: Female

DRUGS (2)
  1. AQUAFRESH EXTREME CLEAN WHITENING ACTION [Suspect]
     Active Substance: SODIUM FLUORIDE
     Indication: DENTAL CLEANING
     Dosage: UNK
  2. AQUAFRESH EXTREME CLEAN WHITENING ACTION [Suspect]
     Active Substance: SODIUM FLUORIDE
     Indication: DENTAL CLEANING
     Dosage: UNK
     Dates: start: 20171201

REACTIONS (4)
  - Toothache [Unknown]
  - Drug ineffective [Unknown]
  - Dental caries [Unknown]
  - Tooth abscess [Unknown]
